FAERS Safety Report 11224652 (Version 1)
Quarter: 2015Q2

REPORT INFORMATION
  Report Type: Spontaneous
  Country: GB (occurrence: GB)
  Receive Date: 20150629
  Receipt Date: 20150629
  Transmission Date: 20150821
  Serious: Yes (Other)
  Sender: FDA-Public Use
  Company Number: GB-MALLINCKRODT-T201503126

PATIENT
  Age: 62 Year
  Sex: Male

DRUGS (1)
  1. SODIUM IODIDE (I 131) CAPSULES T [Suspect]
     Active Substance: SODIUM IODIDE I-131
     Indication: RADIOACTIVE IODINE THERAPY
     Dosage: UNK
     Route: 065

REACTIONS (3)
  - Endocrine ophthalmopathy [Recovering/Resolving]
  - Hypothyroidism [Unknown]
  - Treatment failure [Unknown]
